FAERS Safety Report 6189111-0 (Version None)
Quarter: 2009Q2

REPORT INFORMATION
  Report Type: 
  Country: None (occurrence: None)
  Receive Date: 20090512
  Receipt Date: 20090427
  Transmission Date: 20091009
  Serious: Yes (Hospitalization)
  Sender: FDA-Public Use
  Company Number: DSM-2009-00583

PATIENT
  Age: 75 Year
  Sex: Male

DRUGS (4)
  1. OLMESARTAN MEDOXOMIL [Suspect]
     Indication: HYPERTENSION
     Dosage: 20 MG (20 MG, 1 IN 1 D), ORAL
     Route: 048
     Dates: start: 20081001
  2. ACERCOMP (HYDROCHLOROTHIAZIDE, LISINOPRIL) [Suspect]
     Indication: HYPERTENSION
     Dosage: 30+18.75 MG, ORAL
     Route: 048
  3. SIMVAHEXAL (SIMVASTATIN) (10 MILLIGRAM) [Suspect]
     Indication: HYPERCHOLESTEROLAEMIA
     Dosage: 5 MG (10 MG, 1 IN 2 D), ORAL; 20 MG, ORAL
     Route: 048
     Dates: start: 20060101, end: 20081001
  4. SIMVAHEXAL (SIMVASTATIN) (10 MILLIGRAM) [Suspect]
     Indication: HYPERCHOLESTEROLAEMIA
     Dosage: 5 MG (10 MG, 1 IN 2 D), ORAL; 20 MG, ORAL
     Route: 048
     Dates: start: 20081001, end: 20090408

REACTIONS (5)
  - ALANINE AMINOTRANSFERASE INCREASED [None]
  - ASPARTATE AMINOTRANSFERASE INCREASED [None]
  - ERUCTATION [None]
  - HEPATIC ENZYME INCREASED [None]
  - NAUSEA [None]
